FAERS Safety Report 7779744-X (Version None)
Quarter: 2011Q3

REPORT INFORMATION
  Report Type: 
  Country: None (occurrence: None)
  Receive Date: 20110927
  Receipt Date: 20110131
  Transmission Date: 20111222
  Serious: No
  Sender: FDA-Public Use
  Company Number: US-ASTRAZENECA-2010SE21300

PATIENT
  Age: 29 Year
  Sex: Female
  Weight: 72.6 kg

DRUGS (2)
  1. MEDICAL MARIJUANA [Concomitant]
  2. SEROQUEL XR [Suspect]
     Indication: BIPOLAR DISORDER
     Route: 048
     Dates: start: 20090101, end: 20100901

REACTIONS (9)
  - MUSCLE SPASMS [None]
  - PARAESTHESIA [None]
  - ANXIETY [None]
  - MUSCULOSKELETAL STIFFNESS [None]
  - DRUG DOSE OMISSION [None]
  - WITHDRAWAL SYNDROME [None]
  - MALAISE [None]
  - TACHYPHRENIA [None]
  - PYREXIA [None]
